FAERS Safety Report 6266098-3 (Version None)
Quarter: 2009Q3

REPORT INFORMATION
  Report Type: 
  Country: None (occurrence: None)
  Receive Date: 20090713
  Receipt Date: 20090706
  Transmission Date: 20100115
  Serious: No
  Sender: FDA-Public Use
  Company Number: US-GENENTECH-285516

PATIENT
  Sex: Male

DRUGS (4)
  1. OMALIZUMAB [Suspect]
     Indication: ASTHMA
     Dosage: UNK
     Route: 058
  2. ASTEPRO [Concomitant]
     Indication: DRUG USE FOR UNKNOWN INDICATION
  3. STEROID NOS [Concomitant]
     Indication: DRUG USE FOR UNKNOWN INDICATION
  4. NASACORT AQ [Concomitant]
     Indication: DRUG USE FOR UNKNOWN INDICATION

REACTIONS (2)
  - AGEUSIA [None]
  - ANOSMIA [None]
